FAERS Safety Report 25779961 (Version 1)
Quarter: 2025Q3

REPORT INFORMATION
  Report Type: Spontaneous
  Country: US (occurrence: US)
  Receive Date: 20250909
  Receipt Date: 20250909
  Transmission Date: 20251021
  Serious: Yes (Hospitalization, Other)
  Sender: BIOVITRUM
  Company Number: US-BIOVITRUM-2025-US-012199

PATIENT
  Age: 39 Year
  Sex: Female

DRUGS (1)
  1. DOPTELET [Suspect]
     Active Substance: AVATROMBOPAG MALEATE
     Indication: Immune thrombocytopenia
     Route: 048

REACTIONS (9)
  - Cerebrovascular accident [Unknown]
  - Nausea [Unknown]
  - Dehydration [Unknown]
  - Adverse drug reaction [Unknown]
  - Thrombosis [Unknown]
  - Platelet count abnormal [Recovering/Resolving]
  - Product use issue [Unknown]
  - Acute kidney injury [Unknown]
  - Chromaturia [Unknown]
